FAERS Safety Report 4721695-9 (Version None)
Quarter: 2005Q3

REPORT INFORMATION
  Report Type: 
  Country: None (occurrence: None)
  Receive Date: 20050721
  Receipt Date: 20050302
  Transmission Date: 20060218
  Serious: No
  Sender: FDA-Public Use
  Company Number: US-BRISTOL-MYERS SQUIBB COMPANY-12882882

PATIENT
  Age: 55 Year
  Sex: Male
  Weight: 133 kg

DRUGS (11)
  1. WARFARIN SODIUM [Suspect]
     Indication: DEEP VEIN THROMBOSIS
  2. ACCUPRIL [Concomitant]
  3. AMARYL [Concomitant]
  4. BEXTRA [Concomitant]
  5. COLCHICINE [Concomitant]
  6. FOLIC ACID [Concomitant]
  7. LITHIUM CARBONATE [Concomitant]
  8. METFORMIN HCL [Concomitant]
  9. METHOTREXATE [Concomitant]
  10. NEURONTIN [Concomitant]
  11. OXYCONTIN [Concomitant]

REACTIONS (2)
  - HAEMORRHAGE [None]
  - OEDEMA PERIPHERAL [None]
